FAERS Safety Report 9565173 (Version 1)
Quarter: 2013Q3

REPORT INFORMATION
  Report Type: Spontaneous
  Country: US (occurrence: JO)
  Receive Date: 20130930
  Receipt Date: 20130930
  Transmission Date: 20140515
  Serious: No
  Sender: FDA-Public Use
  Company Number: US-GLAXOSMITHKLINE-A1036904A

PATIENT
  Sex: Male

DRUGS (1)
  1. LAMIVUDINE-HBV [Suspect]
     Indication: CHRONIC HEPATITIS B

REACTIONS (1)
  - Drug ineffective [Unknown]
